FAERS Safety Report 6732674-4 (Version None)
Quarter: 2010Q2

REPORT INFORMATION
  Report Type: 
  Country: None (occurrence: None)
  Receive Date: 20100519
  Receipt Date: 20090806
  Transmission Date: 20101027
  Serious: No
  Sender: FDA-Public Use
  Company Number: US-BRISTOL-MYERS SQUIBB COMPANY-14731608

PATIENT
  Age: 41 Year
  Sex: Male
  Weight: 75 kg

DRUGS (2)
  1. BARACLUDE [Suspect]
     Indication: HEPATITIS B
     Dates: start: 20090101
  2. ULTRASE MT20 [Concomitant]

REACTIONS (3)
  - FATIGUE [None]
  - NAUSEA [None]
  - SOMNOLENCE [None]
